FAERS Safety Report 8923286 (Version 1)
Quarter: 2012Q4

REPORT INFORMATION
  Report Type: Report from Study
  Country: CA (occurrence: CA)
  Receive Date: 20121123
  Receipt Date: 20121123
  Transmission Date: 20130627
  Serious: Yes (Hospitalization)
  Sender: FDA-Public Use
  Company Number: CA-JNJFOC-20121107315

PATIENT
  Age: 47 Year
  Sex: Male
  Weight: 101 kg

DRUGS (6)
  1. REMICADE [Suspect]
     Indication: CROHN^S DISEASE
     Route: 042
     Dates: start: 20121010
  2. VENLAFAXINE [Concomitant]
     Route: 065
  3. ZYLOPRIM [Concomitant]
     Route: 065
  4. BUSCOPAN [Concomitant]
     Route: 065
  5. COVERSYL [Concomitant]
     Route: 065
  6. RISPERIDONE [Concomitant]
     Route: 065

REACTIONS (2)
  - Gastrointestinal stoma complication [Not Recovered/Not Resolved]
  - Hernia [Not Recovered/Not Resolved]
